FAERS Safety Report 6417514-5 (Version None)
Quarter: 2009Q4

REPORT INFORMATION
  Report Type: 
  Country: None (occurrence: None)
  Receive Date: 20091028
  Receipt Date: 20091016
  Transmission Date: 20100525
  Serious: Yes (Hospitalization)
  Sender: FDA-Public Use
  Company Number: JP-PFIZER INC-2009247732

PATIENT
  Age: 68 Year

DRUGS (14)
  1. SUNITINIB MALATE [Suspect]
     Indication: COLORECTAL CANCER METASTATIC
     Dosage: 37.5 MG, 1X/DAY, EVERY DAY
     Route: 048
     Dates: start: 20090714
  2. OXALIPLATIN [Suspect]
     Indication: COLORECTAL CANCER METASTATIC
     Dosage: 140 MG DAILY, EVERY 2 WEEKS
     Route: 042
     Dates: start: 20090714
  3. FLUOROURACIL [Suspect]
     Indication: COLORECTAL CANCER METASTATIC
     Dosage: 3950 MG, EVERY 2 WEEKS, CONTINUOUS INFUSION
     Route: 042
     Dates: start: 20090714
  4. FLUOROURACIL [Suspect]
     Dosage: 650 MG, EVERY 2 WEEKS
     Route: 040
     Dates: start: 20090714
  5. CALCIUM LEVOFOLINATE [Suspect]
     Indication: COLORECTAL CANCER METASTATIC
     Dosage: 325 MG DAILY, EVERY 2 WEEKS
     Route: 042
     Dates: start: 20090714
  6. ALLOPURINOL [Concomitant]
     Indication: HYPERURICAEMIA
     Dosage: 100 MG, 2X/DAY
  7. LOXONIN [Concomitant]
     Indication: CANCER PAIN
     Dosage: 60 MG, 3X/DAY
     Route: 048
  8. MUCOSTA [Concomitant]
     Indication: PROPHYLAXIS
     Dosage: 100 MG, 3X/DAY
     Route: 048
  9. MAG-LAX [Concomitant]
     Indication: CONSTIPATION
     Dosage: 330 MG, 3X/DAY
     Route: 048
  10. FAMOTIDINE [Concomitant]
     Indication: PROPHYLAXIS AGAINST GASTROINTESTINAL ULCER
     Dosage: 20 MG, 2X/DAY
     Route: 048
  11. MORPHINE HYDROCHLORIDE [Concomitant]
     Indication: CANCER PAIN
     Dosage: 60 MG, 1X/DAY
     Route: 048
     Dates: start: 20090713
  12. LENDORMIN [Concomitant]
     Indication: INSOMNIA
     Dosage: 0.25 MG, AS NEEDED
     Route: 048
  13. DECADRON [Concomitant]
     Dosage: UNK
     Dates: start: 20090714, end: 20090714
  14. GRANISETRON [Concomitant]
     Dosage: UNK
     Dates: start: 20090714, end: 20090714

REACTIONS (1)
  - LUNG INFECTION [None]
